FAERS Safety Report 5015670-7 (Version None)
Quarter: 2006Q2

REPORT INFORMATION
  Report Type: 
  Country: None (occurrence: None)
  Receive Date: 20060601
  Receipt Date: 20060519
  Transmission Date: 20061013
  Serious: Yes (Hospitalization)
  Sender: FDA-Public Use
  Company Number: 2006-UK-UNI-00100

PATIENT
  Age: 64 Year
  Sex: Female

DRUGS (5)
  1. DIGOXIN [Suspect]
     Indication: ATRIAL FIBRILLATION
     Route: 065
  2. SOTALOL HCL [Suspect]
     Indication: ATRIAL FIBRILLATION
     Route: 065
  3. VERAPAMIL [Suspect]
     Indication: ATRIAL FIBRILLATION
     Dosage: 240MG PER DAY
     Route: 065
  4. CO-AMILOFRUSE [Concomitant]
  5. PERINDOPRIL [Concomitant]

REACTIONS (15)
  - ABDOMINAL PAIN [None]
  - ABDOMINAL TENDERNESS [None]
  - ANURIA [None]
  - ATRIAL FIBRILLATION [None]
  - BOWEL SOUNDS ABNORMAL [None]
  - BRADYCARDIA [None]
  - CARDIOMEGALY [None]
  - COUGH [None]
  - DEPRESSED LEVEL OF CONSCIOUSNESS [None]
  - DRUG INTERACTION [None]
  - DYSPNOEA [None]
  - HYPOTENSION [None]
  - METABOLIC ACIDOSIS [None]
  - PIGMENTATION DISORDER [None]
  - RENAL FAILURE [None]
